FAERS Safety Report 5429472-0 (Version None)
Quarter: 2007Q3

REPORT INFORMATION
  Report Type: 
  Country: None (occurrence: None)
  Receive Date: 20070829
  Receipt Date: 20070823
  Transmission Date: 20080115
  Serious: Yes (Other)
  Sender: FDA-Public Use
  Company Number: A0676796A

PATIENT
  Sex: Male

DRUGS (1)
  1. PAXIL [Suspect]
     Indication: PANIC ATTACK

REACTIONS (29)
  - ANXIETY [None]
  - APATHY [None]
  - ARTHROPATHY [None]
  - BALANCE DISORDER [None]
  - BRUXISM [None]
  - CHOKING SENSATION [None]
  - COGNITIVE DISORDER [None]
  - CONFUSIONAL STATE [None]
  - DIARRHOEA [None]
  - DISTURBANCE IN ATTENTION [None]
  - DRUG WITHDRAWAL SYNDROME [None]
  - DYSARTHRIA [None]
  - FALL [None]
  - FEELING ABNORMAL [None]
  - HAIR DISORDER [None]
  - HALLUCINATION [None]
  - ILLITERACY [None]
  - MEMORY IMPAIRMENT [None]
  - MENTAL IMPAIRMENT [None]
  - MOTOR DYSFUNCTION [None]
  - MUSCULAR WEAKNESS [None]
  - NAIL DISORDER [None]
  - NERVOUSNESS [None]
  - PAIN [None]
  - PANIC ATTACK [None]
  - RESPIRATORY ARREST [None]
  - SEXUAL DYSFUNCTION [None]
  - VISION BLURRED [None]
  - VISUAL ACUITY REDUCED [None]
